FAERS Safety Report 5220637-X (Version None)
Quarter: 2007Q1

REPORT INFORMATION
  Report Type: 
  Country: None (occurrence: None)
  Receive Date: 20070125
  Receipt Date: 20070125
  Transmission Date: 20070707
  Serious: Yes (Hospitalization)
  Sender: FDA-Public Use
  Company Number: None

PATIENT
  Sex: Male
  Weight: 81.6475 kg

DRUGS (3)
  1. VICODIN [Suspect]
     Indication: LIMB OPERATION
     Dosage: PO
     Route: 048
  2. VICODIN [Suspect]
     Indication: PROCEDURAL PAIN
     Dosage: PO
     Route: 048
  3. ASPIRIN [Concomitant]

REACTIONS (2)
  - ABDOMINAL PAIN [None]
  - INFREQUENT BOWEL MOVEMENTS [None]
